FAERS Safety Report 6796020-2 (Version None)
Quarter: 2010Q2

REPORT INFORMATION
  Report Type: 
  Country: None (occurrence: None)
  Receive Date: 20100625
  Receipt Date: 20100615
  Transmission Date: 20101027
  Serious: Yes (Hospitalization)
  Sender: FDA-Public Use
  Company Number: US-ELI_LILLY_AND_COMPANY-US200906005672

PATIENT
  Sex: Male
  Weight: 122.45 kg

DRUGS (10)
  1. BYETTA [Suspect]
     Dosage: UNK, UNK
     Dates: start: 20061027, end: 20061031
  2. METFORMIN [Concomitant]
     Dosage: UNK, 2/D
  3. GLIPIZIDE [Concomitant]
     Dosage: UNK, 2/D
  4. LANTUS [Concomitant]
     Dosage: UNK, DAILY (1/D)
  5. COREG [Concomitant]
     Dosage: UNK, 2/D
     Route: 004
  6. LISINOPRIL [Concomitant]
     Dosage: UNK, DAILY (1/D)
  7. PLAVIX [Concomitant]
     Dosage: UNK, DAILY (1/D)
  8. IMDUR [Concomitant]
     Dosage: UNK, DAILY (1/D)
  9. LIPITOR [Concomitant]
     Dosage: UNK, DAILY (1/D)
  10. GEMFIBROZIL [Concomitant]
     Dosage: 600 MG, DAILY (1/D)

REACTIONS (8)
  - BLOOD TRIGLYCERIDES INCREASED [None]
  - HEPATITIS [None]
  - HEPATITIS ACUTE [None]
  - OFF LABEL USE [None]
  - PANCREATITIS [None]
  - PANCREATITIS ACUTE [None]
  - RENAL INJURY [None]
  - WEIGHT DECREASED [None]
